FAERS Safety Report 9060847 (Version 5)
Quarter: 2014Q3

REPORT INFORMATION
  Report Type: Spontaneous
  Country: US (occurrence: US)
  Receive Date: 20130204
  Receipt Date: 20140725
  Transmission Date: 20150326
  Serious: Yes (Death, Hospitalization, Other)
  Sender: FDA-Public Use
  Company Number: US-JNJFOC-20130112962

PATIENT
  Age: 87 Year
  Sex: Female
  Weight: 72.58 kg

DRUGS (3)
  1. XARELTO [Suspect]
     Active Substance: RIVAROXABAN
     Indication: THROMBOSIS
     Dosage: OCT/NOV-2012 STARTD DATE OF THERAPY
     Route: 048
     Dates: start: 2012, end: 20121217
  2. ASPIRIN. [Suspect]
     Active Substance: ASPIRIN
     Indication: THROMBOSIS
     Route: 065
  3. ASPIRIN. [Suspect]
     Active Substance: ASPIRIN
     Indication: THROMBOSIS
     Route: 065
     Dates: start: 20121205, end: 20121206

REACTIONS (14)
  - Vomiting [Recovered/Resolved]
  - Asthenia [Recovering/Resolving]
  - Hypotension [Recovered/Resolved]
  - Haemoglobin decreased [Recovered/Resolved]
  - Fatigue [Recovering/Resolving]
  - Contusion [Recovering/Resolving]
  - Haematochezia [Recovered/Resolved]
  - Aspiration [Recovering/Resolving]
  - Death [Fatal]
  - Mental status changes [Unknown]
  - Dysphagia [Recovered/Resolved]
  - Gastrointestinal haemorrhage [Unknown]
  - Atrial fibrillation [Not Recovered/Not Resolved]
  - Malaise [Recovering/Resolving]

NARRATIVE: CASE EVENT DATE: 201212
